FAERS Safety Report 4431311-1 (Version None)
Quarter: 2004Q3

REPORT INFORMATION
  Report Type: 
  Country: None (occurrence: None)
  Receive Date: 20040818
  Receipt Date: 20040805
  Transmission Date: 20050211
  Serious: Yes (Hospitalization)
  Sender: FDA-Public Use
  Company Number: US-JNJFOC-20040200802

PATIENT
  Age: 64 Year
  Sex: Female
  Weight: 62.5964 kg

DRUGS (24)
  1. REMICADE [Suspect]
     Indication: PSORIATIC ARTHROPATHY
     Dosage: 192 MG, INTRAVENOUS
     Route: 042
     Dates: start: 20020404
  2. REMICADE [Suspect]
     Dosage: 192 MG, INTRAVENOUS
     Route: 042
     Dates: start: 20020418
  3. REMICADE [Suspect]
     Dosage: 192 MG, INTRAVENOUS
     Route: 042
     Dates: start: 20020516
  4. REMICADE [Suspect]
     Dosage: 192 MG, INTRAVENOUS
     Route: 042
     Dates: start: 20020711
  5. REMICADE [Suspect]
     Dosage: 192 MG, INTRAVENOUS
     Route: 042
     Dates: start: 20020905
  6. REMICADE [Suspect]
     Dosage: 192 MG, INTRAVENOUS
     Route: 042
     Dates: start: 20021031
  7. REMICADE [Suspect]
     Dosage: 192 MG, INTRAVENOUS
     Route: 042
     Dates: start: 20021217
  8. REMICADE [Suspect]
     Dosage: 192 MG, INTRAVENOUS
     Route: 042
     Dates: start: 20030915
  9. REMICADE [Suspect]
     Dosage: 192 MG, INTRAVENOUS
     Route: 042
     Dates: start: 20031027
  10. REMICADE [Suspect]
     Dosage: 192 MG, INTRAVENOUS
     Route: 042
     Dates: start: 20031208
  11. ALTACE [Concomitant]
  12. ELAVIL [Concomitant]
  13. DIFLUCAN [Concomitant]
  14. LEVAQUIN [Concomitant]
  15. FLAGYL [Concomitant]
  16. FOLIC ACID [Concomitant]
  17. PREVACID [Concomitant]
  18. CALCIUM (CALCIUM) [Concomitant]
  19. MAGNESIUM (MAGNESIUM) [Concomitant]
  20. VITAMIN C (ASCORBIC ACID) [Concomitant]
  21. ACETAMINOPHEN [Concomitant]
  22. METHOTREXATE [Concomitant]
  23. PREDNISONE [Concomitant]
  24. TYLENOL [Concomitant]

REACTIONS (29)
  - ALANINE AMINOTRANSFERASE INCREASED [None]
  - ALOPECIA [None]
  - ANORECTAL DISORDER [None]
  - ASPARTATE AMINOTRANSFERASE INCREASED [None]
  - BLOOD ALKALINE PHOSPHATASE INCREASED [None]
  - BLOOD AMYLASE INCREASED [None]
  - BLOOD GLUCOSE INCREASED [None]
  - BLOOD PRESSURE INCREASED [None]
  - BLOOD UREA DECREASED [None]
  - C-REACTIVE PROTEIN INCREASED [None]
  - CATARACT [None]
  - CONDITION AGGRAVATED [None]
  - DIARRHOEA [None]
  - DIVERTICULAR PERFORATION [None]
  - DIVERTICULITIS [None]
  - DIVERTICULUM [None]
  - EXTRAVASATION [None]
  - GASTROENTERITIS [None]
  - HEADACHE [None]
  - HYPERTROPHY [None]
  - LIPASE INCREASED [None]
  - PHLEBOLITH [None]
  - PLATELET COUNT INCREASED [None]
  - RED BLOOD CELL SEDIMENTATION RATE INCREASED [None]
  - RED BLOOD CELLS URINE POSITIVE [None]
  - RHEUMATOID ARTHRITIS [None]
  - URINE KETONE BODY PRESENT [None]
  - WHITE BLOOD CELL COUNT INCREASED [None]
  - WHITE BLOOD CELLS URINE POSITIVE [None]
